FAERS Safety Report 20796070 (Version 1)
Quarter: 2022Q2

REPORT INFORMATION
  Report Type: Spontaneous
  Country: FR (occurrence: FR)
  Receive Date: 20220506
  Receipt Date: 20220506
  Transmission Date: 20220720
  Serious: Yes (Hospitalization)
  Sender: FDA-Public Use
  Company Number: None

PATIENT
  Age: 84 Year
  Sex: Male

DRUGS (7)
  1. VALACYCLOVIR HYDROCHLORIDE [Suspect]
     Active Substance: VALACYCLOVIR HYDROCHLORIDE
     Indication: Herpes zoster
     Dosage: 3000 MILLIGRAM, QD
     Route: 048
     Dates: start: 20220315, end: 20220317
  2. PREGABALIN [Suspect]
     Active Substance: PREGABALIN
     Indication: Neuralgia
     Dosage: 100 MILLIGRAM, QD
     Route: 048
     Dates: start: 20220315, end: 20220317
  3. FELODIPINE\METOPROLOL SUCCINATE [Concomitant]
     Active Substance: FELODIPINE\METOPROLOL SUCCINATE
     Dosage: UNK
  4. BEZAFIBRATE [Concomitant]
     Active Substance: BEZAFIBRATE
     Dosage: UNK
  5. GLICLAZIDE [Concomitant]
     Active Substance: GLICLAZIDE
     Dosage: UNK
  6. GLUCOPHAGE [Concomitant]
     Active Substance: METFORMIN HYDROCHLORIDE
     Dosage: UNK
  7. KARDEGIC [Concomitant]
     Active Substance: ASPIRIN DL-LYSINE
     Dosage: UNK

REACTIONS (2)
  - Myoclonus [Recovered/Resolved]
  - Dysarthria [Recovered/Resolved]

NARRATIVE: CASE EVENT DATE: 20220316
